FAERS Safety Report 5142168-8 (Version None)
Quarter: 2006Q4

REPORT INFORMATION
  Report Type: 
  Country: None (occurrence: None)
  Receive Date: 20061102
  Receipt Date: 20061023
  Transmission Date: 20070319
  Serious: Yes (Death)
  Sender: FDA-Public Use
  Company Number: US-AVENTIS-200618838US

PATIENT
  Sex: Female

DRUGS (12)
  1. LANTUS [Suspect]
     Indication: DIABETES MELLITUS
     Dates: start: 20060101
  2. OPTICLIK (INSULIN INJECTION PEN) [Suspect]
  3. ZOFRAN [Concomitant]
  4. REGLAN                             /00041901/ [Concomitant]
  5. PROTONIX [Concomitant]
  6. METOPROLOL TARTRATE [Concomitant]
  7. MECLIZINE [Concomitant]
  8. ALLOPURINOL [Concomitant]
  9. HUMULIN N                          /00030504/ [Concomitant]
     Dosage: DOSE: 30 U A, 5 U HS
  10. LISINOPRIL AND HYDROCHLOROTHIAZIDE [Concomitant]
     Dosage: DOSE: 20/12.5
  11. PROMETHAZINE [Concomitant]
  12. ACETAMINOPHEN AND HYDROCODONE BITARTRATE [Concomitant]
     Indication: PAIN
     Dosage: DOSE: 5/500

REACTIONS (15)
  - CEREBRAL INFARCTION [None]
  - CEREBROVASCULAR DISORDER [None]
  - DEHYDRATION [None]
  - DEMENTIA [None]
  - DIABETES MELLITUS [None]
  - FAILURE TO THRIVE [None]
  - GOUT [None]
  - HYPERTENSION [None]
  - MALNUTRITION [None]
  - OSTEOARTHRITIS [None]
  - PHAGOPHOBIA [None]
  - UNEVALUABLE EVENT [None]
  - VERTIGO [None]
  - VOMITING [None]
  - WEIGHT DECREASED [None]
